FAERS Safety Report 11349350 (Version 2)
Quarter: 2015Q3

REPORT INFORMATION
  Report Type: Spontaneous
  Country: US (occurrence: US)
  Receive Date: 20150807
  Receipt Date: 20150818
  Transmission Date: 20151125
  Serious: No
  Sender: FDA-Public Use
  Company Number: US-ASTRAZENECA-2015SE73945

PATIENT
  Age: 29541 Day
  Sex: Male
  Weight: 79.8 kg

DRUGS (21)
  1. LEVOTHYROXIN [Concomitant]
     Active Substance: LEVOTHYROXINE
  2. DALIRESP [Suspect]
     Active Substance: ROFLUMILAST
     Route: 048
  3. GARLIC. [Concomitant]
     Active Substance: GARLIC
  4. FINASTERIDE. [Concomitant]
     Active Substance: FINASTERIDE
  5. LORATADIN [Concomitant]
     Active Substance: LORATADINE
  6. VITAMIN D3 [Concomitant]
     Active Substance: CHOLECALCIFEROL
     Dosage: DAILY
  7. TUDORZA PRESSAIR [Suspect]
     Active Substance: ACLIDINIUM BROMIDE
     Indication: CHRONIC OBSTRUCTIVE PULMONARY DISEASE
     Dosage: 400 MCG- 30 ACTUATIONS ONE PUFF BID
     Route: 055
     Dates: start: 20150625
  8. HYDROCHLOR [Concomitant]
  9. POTASSIUM CHLORIDE. [Concomitant]
     Active Substance: POTASSIUM CHLORIDE
     Indication: SUPPLEMENTATION THERAPY
  10. ALBUTEROL INHALER [Concomitant]
     Active Substance: ALBUTEROL
     Indication: CHRONIC OBSTRUCTIVE PULMONARY DISEASE
     Dosage: THREE TIMES A DAY
  11. DILTIAZEM [Concomitant]
     Active Substance: DILTIAZEM
  12. LISINOPRIL. [Suspect]
     Active Substance: LISINOPRIL
     Route: 048
  13. OXYCODONE [Concomitant]
     Active Substance: OXYCODONE
     Indication: PAIN IN EXTREMITY
  14. PREDNISONE. [Concomitant]
     Active Substance: PREDNISONE
     Indication: ARTHRITIS
  15. FUROSEMIDE. [Concomitant]
     Active Substance: FUROSEMIDE
     Indication: SWELLING
  16. TAMSULOSIN [Concomitant]
     Active Substance: TAMSULOSIN
  17. PROPANOLOL [Concomitant]
     Active Substance: PROPRANOLOL HYDROCHLORIDE
     Indication: ARTHRITIS
  18. STOOL SOFTNER [Concomitant]
     Dosage: TWO TIMES A DAY
  19. ALENDRONATE [Concomitant]
     Active Substance: ALENDRONATE SODIUM
     Indication: BONE DISORDER
  20. SIMVASTATIN. [Concomitant]
     Active Substance: SIMVASTATIN
  21. FISH AND FLEX [Concomitant]
     Dosage: DAILY

REACTIONS (3)
  - Drug hypersensitivity [Unknown]
  - Intentional product misuse [Unknown]
  - Device failure [Unknown]

NARRATIVE: CASE EVENT DATE: 20150725
